FAERS Safety Report 4571918-4 (Version None)
Quarter: 2005Q1

REPORT INFORMATION
  Report Type: 
  Country: None (occurrence: None)
  Receive Date: 20050203
  Receipt Date: 20050203
  Transmission Date: 20050727
  Serious: Yes (Hospitalization)
  Sender: FDA-Public Use
  Company Number: None

PATIENT
  Age: 71 Year
  Sex: Male

DRUGS (1)
  1. MESTINON [Suspect]
     Indication: MYASTHENIA GRAVIS
     Dosage: MESTINON 60 MG 1 TAB PO 6 X DAILY
     Route: 048

REACTIONS (1)
  - DYSPHAGIA [None]
